FAERS Safety Report 9827002 (Version 1)
Quarter: 2014Q1

REPORT INFORMATION
  Report Type: Spontaneous
  Country: US (occurrence: US)
  Receive Date: 20140117
  Receipt Date: 20140117
  Transmission Date: 20141002
  Serious: No
  Sender: FDA-Public Use
  Company Number: US-GLAXOSMITHKLINE-A1025058A

PATIENT
  Age: 48 Year
  Sex: Male
  Weight: 80 kg

DRUGS (10)
  1. PROMACTA [Suspect]
     Indication: IMMUNE THROMBOCYTOPENIC PURPURA
     Dosage: 50MG PER DAY
     Route: 048
     Dates: start: 20130504
  2. PREDNISONE [Concomitant]
  3. LISINOPRIL [Concomitant]
  4. OXYCODONE [Concomitant]
  5. ATENOLOL [Concomitant]
  6. BUSPIRONE [Concomitant]
  7. CALTRATE [Concomitant]
  8. IBUPROFEN [Concomitant]
  9. LEXAPRO [Concomitant]
  10. NITROGLYCERIN [Concomitant]

REACTIONS (4)
  - Abdominal distension [Not Recovered/Not Resolved]
  - Diarrhoea [Not Recovered/Not Resolved]
  - Abdominal pain upper [Not Recovered/Not Resolved]
  - Nausea [Not Recovered/Not Resolved]
